FAERS Safety Report 7296086-X (Version None)
Quarter: 2011Q1

REPORT INFORMATION
  Report Type: 
  Country: None (occurrence: None)
  Receive Date: 20110211
  Receipt Date: 20110211
  Transmission Date: 20110831
  Serious: Yes (Disabling)
  Sender: FDA-Public Use
  Company Number: None

PATIENT
  Age: 57 Year
  Sex: Male
  Weight: 86.1834 kg

DRUGS (1)
  1. CRESTOR [Suspect]
     Indication: BLOOD CHOLESTEROL INCREASED
     Dosage: 10 MG. 1 PER DAY ORALLY
     Route: 048
     Dates: start: 20081030, end: 20100901

REACTIONS (6)
  - ACTIVITIES OF DAILY LIVING IMPAIRED [None]
  - JOINT SWELLING [None]
  - OEDEMA PERIPHERAL [None]
  - TENDON PAIN [None]
  - MYALGIA [None]
  - ASTHENIA [None]
